FAERS Safety Report 8293566-5 (Version None)
Quarter: 2012Q2

REPORT INFORMATION
  Report Type: 
  Country: None (occurrence: None)
  Receive Date: 20120418
  Receipt Date: 20080501
  Transmission Date: 20120825
  Serious: No
  Sender: FDA-Public Use
  Company Number: 2008BI011969

PATIENT
  Sex: Female

DRUGS (2)
  1. TYSABRI [Suspect]
     Route: 042
     Dates: start: 20090924, end: 20120216
  2. TYSABRI [Suspect]
     Indication: MULTIPLE SCLEROSIS
     Route: 042
     Dates: start: 20071010, end: 20081114

REACTIONS (1)
  - VEIN DISORDER [None]
